FAERS Safety Report 5374505-3 (Version None)
Quarter: 2007Q2

REPORT INFORMATION
  Report Type: 
  Country: None (occurrence: None)
  Receive Date: 20070629
  Receipt Date: 20070427
  Transmission Date: 20071010
  Serious: No
  Sender: FDA-Public Use
  Company Number: A0649156A

PATIENT
  Age: 84 Year
  Sex: Female

DRUGS (4)
  1. ADVAIR DISKUS 100/50 [Suspect]
     Indication: ASTHMA
     Route: 055
     Dates: start: 20010401
  2. HYZAAR [Concomitant]
  3. ZOCOR [Concomitant]
  4. VITAMIN [Concomitant]

REACTIONS (1)
  - EYE DISORDER [None]
